FAERS Safety Report 15223299 (Version 3)
Quarter: 2018Q4

REPORT INFORMATION
  Report Type: Spontaneous
  Country: US (occurrence: US)
  Receive Date: 20180731
  Receipt Date: 20181004
  Transmission Date: 20190204
  Serious: Yes (Hospitalization)
  Sender: FDA-Public Use
  Company Number: US-ACTELION-A-NJ2018-176271

PATIENT
  Age: 15 Month
  Sex: Male
  Weight: 6.8 kg

DRUGS (2)
  1. TRACLEER [Suspect]
     Active Substance: BOSENTAN
     Indication: PULMONARY HYPERTENSION
     Dosage: 32 MG, BID
     Route: 048
     Dates: start: 20180525
  2. REVATIO [Concomitant]
     Active Substance: SILDENAFIL CITRATE
     Dosage: 15 MG, UNK
     Route: 048
     Dates: start: 20180228

REACTIONS (2)
  - General physical condition [Recovering/Resolving]
  - Patent ductus arteriosus repair [Recovering/Resolving]

NARRATIVE: CASE EVENT DATE: 20180723
